FAERS Safety Report 24725484 (Version 3)
Quarter: 2024Q4

REPORT INFORMATION
  Report Type: Spontaneous
  Country: US (occurrence: US)
  Receive Date: 20241212
  Receipt Date: 20241218
  Transmission Date: 20250115
  Serious: Yes (Hospitalization)
  Sender: ASTELLAS
  Company Number: US-ASTELLAS-2024-AER-024012

PATIENT
  Sex: Male

DRUGS (1)
  1. PADCEV [Suspect]
     Active Substance: ENFORTUMAB VEDOTIN\ENFORTUMAB VEDOTIN-EJFV
     Indication: Bladder cancer stage IV
     Route: 065

REACTIONS (6)
  - Infusion site extravasation [Unknown]
  - Infusion site pain [Unknown]
  - Chemical burn of skin [Unknown]
  - Limb injury [Unknown]
  - Wound [Unknown]
  - Condition aggravated [Unknown]
